FAERS Safety Report 9356652 (Version 1)
Quarter: 2013Q2

REPORT INFORMATION
  Report Type: Spontaneous
  Country: FR (occurrence: FR)
  Receive Date: 20130619
  Receipt Date: 20130619
  Transmission Date: 20140414
  Serious: Yes (Life-Threatening, Hospitalization)
  Sender: FDA-Public Use
  Company Number: FR-MYLANLABS-2013S1012632

PATIENT
  Age: 58 Year
  Sex: Male

DRUGS (2)
  1. METFORMIN [Suspect]
     Indication: POISONING DELIBERATE
     Dosage: ^LARGE DOSE^
     Route: 065
  2. PSYCHOTROPIC AGENTS [Suspect]
     Indication: POISONING DELIBERATE

REACTIONS (6)
  - Lactic acidosis [Recovering/Resolving]
  - Poisoning deliberate [Recovering/Resolving]
  - Loss of consciousness [None]
  - Aspartate aminotransferase increased [None]
  - Alanine aminotransferase increased [None]
  - Prothrombin level decreased [None]
